FAERS Safety Report 7594503-9 (Version None)
Quarter: 2011Q2

REPORT INFORMATION
  Report Type: 
  Country: None (occurrence: None)
  Receive Date: 20110628
  Receipt Date: 20110615
  Transmission Date: 20111010
  Serious: Yes (Death)
  Sender: FDA-Public Use
  Company Number: 952929

PATIENT
  Age: 55 Year
  Sex: Male

DRUGS (1)
  1. HYDROMORPHONE HCL [Suspect]
     Indication: PRODUCT USED FOR UNKNOWN INDICATION
     Dosage: CONTINUOUS MODE, THROUGH A PCA PUMP
     Dates: end: 20110614

REACTIONS (1)
  - CARDIO-RESPIRATORY ARREST [None]
